FAERS Safety Report 7219600-9 (Version None)
Quarter: 2011Q1

REPORT INFORMATION
  Report Type: 
  Country: None (occurrence: None)
  Receive Date: 20110103
  Receipt Date: 20101214
  Transmission Date: 20110831
  Serious: Yes (Other)
  Sender: FDA-Public Use
  Company Number: WAES 1012USA01359

PATIENT
  Age: 70 Year
  Sex: Male
  Weight: 78.0187 kg

DRUGS (18)
  1. CAP VORINOSTAT 100 MG [Suspect]
     Indication: MULTIPLE MYELOMA
     Dosage: 300 MG DAILY PO
     Route: 048
     Dates: start: 20101126, end: 20101203
  2. ALLOPURINOL [Concomitant]
  3. FENTANYL CITRATE [Concomitant]
  4. GABAPENTIN [Concomitant]
  5. VITAMIN D [Concomitant]
  6. DOXIL [Suspect]
     Indication: MULTIPLE MYELOMA
     Dosage: 43.9 MG DAILY, IV
     Route: 042
     Dates: start: 20101126, end: 20101126
  7. OMEPRAZOLE [Concomitant]
  8. BORTEZOMIB [Suspect]
     Indication: MULTIPLE MYELOMA
     Dosage: 1.9 MG DAILY IV
     Route: 042
     Dates: start: 20101126, end: 20101130
  9. ZOFRAN [Concomitant]
  10. IMMUNE GLOBULIN NOS [Concomitant]
  11. LANTUS [Concomitant]
  12. ACYCLOVIR [Concomitant]
  13. ALUMINUM HYDROXIDE+DIPHENHYD [Concomitant]
  14. CLONIDINE [Concomitant]
  15. DIOVAN [Suspect]
     Indication: HYPERTENSION
     Dosage: 160 MG DAILY; PO
     Route: 048
     Dates: start: 20090901, end: 20100212
  16. NOVOLOG [Concomitant]
  17. OXYCODONE [Concomitant]
  18. ATIVAN [Concomitant]

REACTIONS (1)
  - HYPERTENSION [None]
